FAERS Safety Report 11158131 (Version 5)
Quarter: 2015Q4

REPORT INFORMATION
  Report Type: Spontaneous
  Country: AE (occurrence: None)
  Receive Date: 20150601
  Receipt Date: 20151102
  Transmission Date: 20160304
  Serious: Yes (Hospitalization, Other)
  Sender: FDA-Public Use
  Company Number: 2015AE0284

PATIENT
  Age: 15 Year
  Sex: Female

DRUGS (1)
  1. KINERET [Suspect]
     Active Substance: ANAKINRA
     Indication: FAMILIAL MEDITERRANEAN FEVER
     Dosage: A FULL INJECTION EVERY OTHER DAY ( 1 IN 2 D)
     Route: 058
     Dates: start: 201402, end: 201502

REACTIONS (3)
  - Neutrophil count decreased [None]
  - Contusion [None]
  - Immune thrombocytopenic purpura [None]

NARRATIVE: CASE EVENT DATE: 201502
